FAERS Safety Report 7358350-5 (Version None)
Quarter: 2011Q1

REPORT INFORMATION
  Report Type: 
  Country: None (occurrence: None)
  Receive Date: 20110317
  Receipt Date: 20110311
  Transmission Date: 20110831
  Serious: Yes (Other)
  Sender: FDA-Public Use
  Company Number: US-ELI_LILLY_AND_COMPANY-US201103004009

PATIENT
  Age: 74 Year
  Sex: Male

DRUGS (1)
  1. HUMAN INSULIN [Suspect]

REACTIONS (1)
  - CEREBROVASCULAR ACCIDENT [None]
